FAERS Safety Report 5007272-3 (Version None)
Quarter: 2006Q2

REPORT INFORMATION
  Report Type: 
  Country: None (occurrence: None)
  Receive Date: 20060517
  Receipt Date: 20060505
  Transmission Date: 20061013
  Serious: Yes (Other)
  Sender: FDA-Public Use
  Company Number: 2006058394

PATIENT
  Age: 58 Year
  Sex: Female
  Weight: 54.4316 kg

DRUGS (2)
  1. NASALCROM [Suspect]
     Indication: HYPERSENSITIVITY
     Dosage: 1 SPRAY TWICE DAILY THEN ONCE DAILY, NASAL
     Route: 045
     Dates: start: 20060426, end: 20060503
  2. FEXOFENADINE HYDROCHLORIDE [Suspect]
     Indication: HYPERSENSITIVITY
     Dosage: 60 MG ONCE DAILY
     Dates: start: 20060201

REACTIONS (7)
  - AMNESIA [None]
  - CONFUSIONAL STATE [None]
  - HEADACHE [None]
  - HYPOAESTHESIA [None]
  - NASAL DRYNESS [None]
  - SINUS DISORDER [None]
  - SKIN IRRITATION [None]
